FAERS Safety Report 5071485-5 (Version None)
Quarter: 2006Q3

REPORT INFORMATION
  Report Type: 
  Country: None (occurrence: None)
  Receive Date: 20060804
  Receipt Date: 20060526
  Transmission Date: 20061208
  Serious: Yes (Life-Threatening, Hospitalization)
  Sender: FDA-Public Use
  Company Number: US-SANOFI-SYNTHELABO-F01200601285

PATIENT
  Sex: Female

DRUGS (9)
  1. UNSPECIFIED DRUG [Concomitant]
     Dates: start: 20041115
  2. ADVIL [Concomitant]
     Dosage: UNK
     Dates: start: 19850615
  3. LISINOPRIL [Concomitant]
     Dosage: UNK
     Dates: start: 20041115, end: 20060508
  4. ATENOLOL [Concomitant]
     Dosage: UNK
     Dates: start: 20041115
  5. PREMARIN [Concomitant]
     Dosage: UNK
     Dates: start: 19950601
  6. AVASTIN [Suspect]
     Route: 042
  7. LEUCOVORIN CALCIUM [Suspect]
     Route: 042
  8. FLUOROURACIL [Suspect]
     Dosage: 400MG/M2 IV BOLUS AND 600MG/M2 CONTINUOUS INFUSION Q2W
     Route: 042
  9. OXALIPLATIN [Suspect]
     Indication: COLON CANCER
     Route: 042

REACTIONS (8)
  - DIARRHOEA [None]
  - FLUID INTAKE REDUCED [None]
  - HAEMODIALYSIS [None]
  - HAEMOGLOBIN DECREASED [None]
  - ORAL INTAKE REDUCED [None]
  - PLATELET COUNT DECREASED [None]
  - RENAL FAILURE ACUTE [None]
  - RENAL TUBULAR NECROSIS [None]
